FAERS Safety Report 6835342-3 (Version None)
Quarter: 2010Q3

REPORT INFORMATION
  Report Type: 
  Country: None (occurrence: None)
  Receive Date: 20100707
  Receipt Date: 20100624
  Transmission Date: 20110219
  Serious: Yes (Other)
  Sender: FDA-Public Use
  Company Number: 2010SP036020

PATIENT
  Age: 34 Year
  Sex: Female

DRUGS (5)
  1. SAPHRIS [Suspect]
     Indication: BIPOLAR DISORDER
     Dosage: 7.5 MG; QD;
     Dates: start: 20100318
  2. LAMICTAL [Concomitant]
  3. KLONOPIN [Concomitant]
  4. VITAMIN D [Concomitant]
  5. LITHIUM [Concomitant]

REACTIONS (2)
  - DEPRESSION [None]
  - SUICIDAL IDEATION [None]
